FAERS Safety Report 5066314-X (Version None)
Quarter: 2006Q3

REPORT INFORMATION
  Report Type: 
  Country: None (occurrence: None)
  Receive Date: 20060706
  Receipt Date: 20060427
  Transmission Date: 20061208
  Serious: Yes (Other)
  Sender: FDA-Public Use
  Company Number: 2006057232

PATIENT
  Age: 37 Year
  Sex: Female

DRUGS (15)
  1. ZMAX [Suspect]
     Indication: ILL-DEFINED DISORDER
     Dosage: 2 GRAM (2 GRAM, 1 D)
     Dates: start: 20060427, end: 20060427
  2. XANAX [Concomitant]
  3. RISPERDAL [Concomitant]
  4. ATARAX [Concomitant]
  5. LEXAPRO [Concomitant]
  6. THROPHYLLINE (THEOPHYLLINE) [Concomitant]
  7. PREDNISONE TAB [Concomitant]
  8. PREVACID [Concomitant]
  9. KEPPRA [Concomitant]
  10. FIORICET [Concomitant]
  11. STADOL [Concomitant]
  12. ATIVAN [Concomitant]
  13. ULTRAM [Concomitant]
  14. LORTAB (TRAMADOL HYDROCHLORIDE) [Concomitant]
  15. NOVOLIN R [Concomitant]

REACTIONS (2)
  - BLOOD GLUCOSE INCREASED [None]
  - PARAESTHESIA [None]
